FAERS Safety Report 20976531 (Version 1)
Quarter: 2022Q2

REPORT INFORMATION
  Report Type: Spontaneous
  Country: US (occurrence: None)
  Receive Date: 20220617
  Receipt Date: 20220617
  Transmission Date: 20220721
  Serious: No
  Sender: FDA-Public Use
  Company Number: None

PATIENT
  Age: 44 Year
  Sex: Male

DRUGS (1)
  1. ODOMZO [Suspect]
     Active Substance: SONIDEGIB
     Dosage: 200MG DAILY ORAL?
     Route: 048
     Dates: start: 202203

REACTIONS (2)
  - Drug ineffective [None]
  - Malignant neoplasm progression [None]

NARRATIVE: CASE EVENT DATE: 20220610
